FAERS Safety Report 19427051 (Version 3)
Quarter: 2021Q3

REPORT INFORMATION
  Report Type: Spontaneous
  Country: HR (occurrence: HR)
  Receive Date: 20210616
  Receipt Date: 20210708
  Transmission Date: 20211014
  Serious: Yes (Death, Hospitalization)
  Sender: FDA-Public Use
  Company Number: HR-MALLINCKRODT PHARMACEUTICALS-T202102596

PATIENT
  Age: 40 Year
  Sex: Male
  Weight: 122 kg

DRUGS (1)
  1. UVADEX [Suspect]
     Active Substance: METHOXSALEN
     Indication: CHRONIC GRAFT VERSUS HOST DISEASE
     Dosage: UNK (EXTRACORPOREAL)
     Route: 050
     Dates: start: 20210202, end: 202102

REACTIONS (2)
  - Product use in unapproved indication [Unknown]
  - COVID-19 [Fatal]

NARRATIVE: CASE EVENT DATE: 2021
